FAERS Safety Report 16932304 (Version 1)
Quarter: 2019Q4

REPORT INFORMATION
  Report Type: Spontaneous
  Country: SK (occurrence: SK)
  Receive Date: 20191017
  Receipt Date: 20191017
  Transmission Date: 20200122
  Serious: Yes (Hospitalization, Other)
  Sender: FDA-Public Use
  Company Number: SK-GALDERMA-SK19061424

PATIENT
  Age: 78 Year
  Sex: Female

DRUGS (3)
  1. METRONIDAZOLE. [Suspect]
     Active Substance: METRONIDAZOLE
     Indication: PRODUCT USED FOR UNKNOWN INDICATION
     Route: 065
  2. PRADAXA [Concomitant]
     Active Substance: DABIGATRAN ETEXILATE MESYLATE
     Indication: ATRIAL FIBRILLATION
     Route: 048
     Dates: end: 20190115
  3. PRADAXA [Concomitant]
     Active Substance: DABIGATRAN ETEXILATE MESYLATE
     Indication: CEREBROVASCULAR ACCIDENT PROPHYLAXIS
     Route: 048
     Dates: start: 20190227, end: 2019

REACTIONS (6)
  - Hypoalbuminaemia [Unknown]
  - Diarrhoea [Unknown]
  - Thrombosis mesenteric vessel [Recovered/Resolved]
  - Pneumonia [Unknown]
  - Clostridium difficile infection [Unknown]
  - Intestinal gangrene [Recovered/Resolved]
